FAERS Safety Report 24409159 (Version 1)
Quarter: 2024Q4

REPORT INFORMATION
  Report Type: Spontaneous
  Country: US (occurrence: US)
  Receive Date: 20241008
  Receipt Date: 20241008
  Transmission Date: 20250115
  Serious: Yes (Hospitalization, Other)
  Sender: AMGEN
  Company Number: US-AMGEN-USASP2024194362

PATIENT
  Age: 26 Year
  Sex: Female

DRUGS (1)
  1. RITUXIMAB [Suspect]
     Active Substance: RITUXIMAB
     Indication: Multiple sclerosis
     Dosage: UNK
     Route: 065

REACTIONS (6)
  - Tooth abscess [Unknown]
  - Cellulitis staphylococcal [Unknown]
  - Bacteraemia [Unknown]
  - Septic pulmonary embolism [Unknown]
  - Off label use [Unknown]
  - Pyrexia [Unknown]
